FAERS Safety Report 25689222 (Version 1)
Quarter: 2025Q3

REPORT INFORMATION
  Report Type: Spontaneous
  Country: US (occurrence: US)
  Receive Date: 20250818
  Receipt Date: 20250818
  Transmission Date: 20251021
  Serious: No
  Sender: ELI LILLY AND COMPANY
  Company Number: US-ELI_LILLY_AND_COMPANY-US202508005734

PATIENT
  Age: 78 Year

DRUGS (4)
  1. ZEPBOUND [Suspect]
     Active Substance: TIRZEPATIDE
     Indication: Weight control
     Route: 058
     Dates: start: 20250802
  2. ZEPBOUND [Suspect]
     Active Substance: TIRZEPATIDE
     Indication: Sleep apnoea syndrome
  3. NEPRESOL [DIHYDRALAZINE MESILATE] [Concomitant]
     Indication: Product used for unknown indication
  4. PEPSIN [Concomitant]
     Active Substance: PEPSIN
     Indication: Product used for unknown indication

REACTIONS (7)
  - Abdominal pain upper [Recovering/Resolving]
  - Diarrhoea [Unknown]
  - Nausea [Recovering/Resolving]
  - Vomiting [Unknown]
  - Retching [Unknown]
  - Flatulence [Recovering/Resolving]
  - Abdominal pain lower [Recovering/Resolving]

NARRATIVE: CASE EVENT DATE: 20250802
